FAERS Safety Report 8479440-X (Version None)
Quarter: 2012Q2

REPORT INFORMATION
  Report Type: 
  Country: None (occurrence: None)
  Receive Date: 20120629
  Receipt Date: 20120621
  Transmission Date: 20120825
  Serious: Yes (Other)
  Sender: FDA-Public Use
  Company Number: US-US-EMD SERONO, INC.-7027166

PATIENT
  Sex: Female

DRUGS (2)
  1. REBIF [Suspect]
     Route: 058
     Dates: start: 20101109
  2. REBIF [Suspect]
     Indication: MULTIPLE SCLEROSIS
     Route: 058
     Dates: start: 20101019, end: 20101105

REACTIONS (5)
  - PALPITATIONS [None]
  - HYPERHIDROSIS [None]
  - PRESYNCOPE [None]
  - DYSGEUSIA [None]
  - FEELING HOT [None]
